FAERS Safety Report 20881584 (Version 1)
Quarter: 2022Q2

REPORT INFORMATION
  Report Type: Report from Study
  Country: US (occurrence: US)
  Receive Date: 20220527
  Receipt Date: 20220527
  Transmission Date: 20220721
  Serious: Yes (Hospitalization, Other)
  Sender: FDA-Public Use
  Company Number: US-BRISTOL-MYERS SQUIBB COMPANY-2022-047419

PATIENT
  Age: 81 Year
  Sex: Female
  Weight: 65 kg

DRUGS (4)
  1. ELIQUIS [Suspect]
     Active Substance: APIXABAN
     Indication: Atrial fibrillation
     Dosage: DOSE : UNAVAILABLE;     FREQ : TWICE A DAY
     Dates: start: 20210301
  2. TYLENOL [Concomitant]
     Active Substance: ACETAMINOPHEN
     Indication: Pain
  3. METOPROLOL [Concomitant]
     Active Substance: METOPROLOL
     Indication: Atrial fibrillation
  4. VALIUM [Concomitant]
     Active Substance: DIAZEPAM
     Indication: Muscle spasms

REACTIONS (3)
  - Joint swelling [Unknown]
  - Rash macular [Unknown]
  - Atrial fibrillation [Unknown]
